FAERS Safety Report 5717198-5 (Version None)
Quarter: 2008Q2

REPORT INFORMATION
  Report Type: 
  Country: None (occurrence: None)
  Receive Date: 20080424
  Receipt Date: 20080414
  Transmission Date: 20081010
  Serious: Yes (Other)
  Sender: FDA-Public Use
  Company Number: GB-PFIZER INC-2008033774

PATIENT
  Age: 24 Year
  Sex: Female
  Weight: 73 kg

DRUGS (2)
  1. CHAMPIX [Suspect]
     Indication: SMOKING CESSATION THERAPY
     Route: 048
     Dates: start: 20080227, end: 20080323
  2. CITALOPRAM HYDROBROMIDE [Concomitant]
     Dates: start: 20080303, end: 20080323

REACTIONS (5)
  - AGITATION [None]
  - ASTHENIA [None]
  - FACIAL SPASM [None]
  - MUSCLE STRAIN [None]
  - TREMOR [None]
